FAERS Safety Report 11236431 (Version 1)
Quarter: 2015Q3

REPORT INFORMATION
  Report Type: Spontaneous
  Country: US (occurrence: US)
  Receive Date: 20150702
  Receipt Date: 20150702
  Transmission Date: 20151125
  Serious: No
  Sender: FDA-Public Use
  Company Number: US-GLAXOSMITHKLINE-US2015093341

PATIENT
  Age: 85 Year
  Sex: Female

DRUGS (9)
  1. CENTRUM SILVER [Concomitant]
     Active Substance: VITAMINS
  2. METAMUCIL [Concomitant]
     Active Substance: PLANTAGO SEED
  3. METOPROLOL [Concomitant]
     Active Substance: METOPROLOL
  4. BENICAR [Concomitant]
     Active Substance: OLMESARTAN MEDOXOMIL
  5. LASIX [Concomitant]
     Active Substance: FUROSEMIDE
  6. TYLENOL [Concomitant]
     Active Substance: ACETAMINOPHEN
  7. ELIQUIS [Concomitant]
     Active Substance: APIXABAN
  8. CRESTOR [Concomitant]
     Active Substance: ROSUVASTATIN CALCIUM
  9. VENTOLIN HFA [Suspect]
     Active Substance: ALBUTEROL SULFATE
     Indication: PULMONARY FIBROSIS
     Dosage: 1 PUFF(S), PRN
     Route: 055
     Dates: start: 2004

REACTIONS (4)
  - Underdose [Unknown]
  - Device use error [Unknown]
  - Therapeutic response decreased [Unknown]
  - Dyspnoea [Recovered/Resolved]

NARRATIVE: CASE EVENT DATE: 201506
